FAERS Safety Report 6371882-1 (Version None)
Quarter: 2009Q3

REPORT INFORMATION
  Report Type: 
  Country: None (occurrence: None)
  Receive Date: 20090923
  Receipt Date: 20090915
  Transmission Date: 20100115
  Serious: Yes (Hospitalization)
  Sender: FDA-Public Use
  Company Number: PHHO2009US11350

PATIENT
  Sex: Male
  Weight: 146 kg

DRUGS (7)
  1. LOPRESSOR [Suspect]
     Indication: HYPERTENSION
     Dosage: UNK
     Route: 048
     Dates: start: 20020101, end: 20081102
  2. CANDESARTAN CILEXETIL [Suspect]
     Dosage: UNK
     Route: 048
     Dates: start: 20020101, end: 20081102
  3. TRAMADOL HYDROCHLORIDE [Suspect]
     Dosage: UNK
     Route: 048
     Dates: start: 20080219
  4. AMITRIPTYLINE [Suspect]
     Dosage: UNK
     Route: 048
     Dates: start: 20081001
  5. VALACYCLOVIR [Concomitant]
  6. VITAMINS [Concomitant]
  7. VITAMIN B COMPLEX CAP [Concomitant]

REACTIONS (8)
  - DYSPNOEA [None]
  - FATIGUE [None]
  - MYOCARDIAL ISCHAEMIA [None]
  - NODAL RHYTHM [None]
  - POOR PERIPHERAL CIRCULATION [None]
  - RENAL FAILURE [None]
  - SINUS ARREST [None]
  - SINUS BRADYCARDIA [None]
